FAERS Safety Report 25378311 (Version 1)
Quarter: 2025Q2

REPORT INFORMATION
  Report Type: Spontaneous
  Country: US (occurrence: US)
  Receive Date: 20250530
  Receipt Date: 20250530
  Transmission Date: 20250716
  Serious: Yes (Hospitalization, Other)
  Sender: CONCORD BIOTECH LTD
  Company Number: US-CBL-003165

PATIENT
  Age: 70 Year
  Sex: Female

DRUGS (2)
  1. MYCOPHENOLATE MOFETIL [Suspect]
     Active Substance: MYCOPHENOLATE MOFETIL
     Indication: Gout
     Route: 065
  2. PEGLOTICASE [Concomitant]
     Active Substance: PEGLOTICASE
     Indication: Gout
     Route: 065

REACTIONS (2)
  - Disseminated varicella zoster virus infection [Recovering/Resolving]
  - Product use in unapproved indication [Unknown]
